FAERS Safety Report 6581014-2 (Version None)
Quarter: 2010Q1

REPORT INFORMATION
  Report Type: 
  Country: None (occurrence: None)
  Receive Date: 20100215
  Receipt Date: 20100202
  Transmission Date: 20100710
  Serious: Yes (Hospitalization)
  Sender: FDA-Public Use
  Company Number: ES-ELI_LILLY_AND_COMPANY-ES200908006635

PATIENT
  Age: 77 Year
  Sex: Male

DRUGS (2)
  1. FORTEO [Suspect]
     Indication: OSTEOPOROSIS
     Dosage: 20 UG, UNKNOWN
     Route: 058
     Dates: start: 20081101
  2. DACORTIN [Concomitant]
     Indication: HEADACHE
     Dosage: UNK, UNKNOWN

REACTIONS (1)
  - ANGINA PECTORIS [None]
